FAERS Safety Report 12949623 (Version 1)
Quarter: 2016Q4

REPORT INFORMATION
  Report Type: Spontaneous
  Country: JP (occurrence: None)
  Receive Date: 20161117
  Receipt Date: 20161117
  Transmission Date: 20170207
  Serious: Yes (Death)
  Sender: FDA-Public Use
  Company Number: 2016-JP-000003

PATIENT
  Age: 60 Year
  Sex: Male

DRUGS (1)
  1. METHYLENE BLUE INTRAVENOUS INJECTION 50MG ^DAIICHI SANKYO^ (METHYLTHIONINIUM CHLORIDE): FORMULATION INJECTION; DOSAGE 100 MG [Suspect]
     Active Substance: METHYLENE BLUE
     Indication: SEPTIC SHOCK
     Route: 042
     Dates: start: 20161014, end: 20161015

REACTIONS (1)
  - Off label use [None]

NARRATIVE: CASE EVENT DATE: 20161015
